FAERS Safety Report 8119185-9 (Version None)
Quarter: 2012Q1

REPORT INFORMATION
  Report Type: 
  Country: None (occurrence: None)
  Receive Date: 20120207
  Receipt Date: 20120123
  Transmission Date: 20120608
  Serious: Yes (Hospitalization)
  Sender: FDA-Public Use
  Company Number: US-JUTA GMBH-2012-01477

PATIENT
  Age: 51 Year
  Sex: Female

DRUGS (2)
  1. FUROSEMIDE [Suspect]
     Indication: RENAL FAILURE CHRONIC
  2. FUROSEMIDE [Suspect]
     Indication: HYPERTENSION
     Route: 065

REACTIONS (2)
  - MELANOSIS COLI [None]
  - ANAEMIA [None]
